FAERS Safety Report 7423562-9 (Version None)
Quarter: 2011Q2

REPORT INFORMATION
  Report Type: 
  Country: None (occurrence: None)
  Receive Date: 20110419
  Receipt Date: 20110413
  Transmission Date: 20111010
  Serious: Yes (Hospitalization)
  Sender: FDA-Public Use
  Company Number: US-JNJFOC-20110401055

PATIENT
  Sex: Male

DRUGS (3)
  1. INVEGA SUSTENNA [Suspect]
     Indication: SCHIZOPHRENIA
     Route: 030
  2. INVEGA [Suspect]
     Indication: SCHIZOPHRENIA
     Route: 048
  3. GEODON [Concomitant]
     Indication: PARANOIA
     Route: 048

REACTIONS (3)
  - ADVERSE DRUG REACTION [None]
  - EXTRAPYRAMIDAL DISORDER [None]
  - PARANOIA [None]
